FAERS Safety Report 5614857-X (Version None)
Quarter: 2008Q1

REPORT INFORMATION
  Report Type: 
  Country: None (occurrence: None)
  Receive Date: 20080131
  Receipt Date: 20080121
  Transmission Date: 20080703
  Serious: Yes (Hospitalization)
  Sender: FDA-Public Use
  Company Number: RENA-1000022

PATIENT
  Age: 46 Year
  Sex: Male

DRUGS (1)
  1. RENAGEL [Suspect]
     Indication: HYPERPHOSPHATAEMIA
     Dosage: 1 G, TID, ORAL
     Route: 048
     Dates: end: 20071219

REACTIONS (1)
  - LARGE INTESTINE PERFORATION [None]
